FAERS Safety Report 4601953-9 (Version None)
Quarter: 2005Q1

REPORT INFORMATION
  Report Type: 
  Country: None (occurrence: None)
  Receive Date: 20050215
  Receipt Date: 20041122
  Transmission Date: 20050727
  Serious: Yes (Hospitalization)
  Sender: FDA-Public Use
  Company Number: 387082

PATIENT
  Age: 76 Year
  Sex: Male

DRUGS (2)
  1. PEGASYS [Suspect]
     Indication: HEPATITIS C
     Dosage: 1 PER WEEK OTHER
     Route: 050
     Dates: start: 20041015, end: 20041119
  2. COPEGUS [Suspect]
     Indication: HEPATITIS C
     Dosage: 4 DOSE FORM DAILY ORAL
     Route: 048
     Dates: start: 20041015, end: 20041119

REACTIONS (3)
  - HAEMOGLOBIN DECREASED [None]
  - PLATELET COUNT DECREASED [None]
  - WHITE BLOOD CELL COUNT DECREASED [None]
